FAERS Safety Report 16390668 (Version 2)
Quarter: 2019Q2

REPORT INFORMATION
  Report Type: Spontaneous
  Country: US (occurrence: US)
  Receive Date: 20190604
  Receipt Date: 20190613
  Transmission Date: 20190711
  Serious: Yes (Death)
  Sender: FDA-Public Use
  Company Number: US-CELGENEUS-USA-20190600495

PATIENT
  Age: 74 Year
  Sex: Male
  Weight: 90.35 kg

DRUGS (5)
  1. THALOMID [Suspect]
     Active Substance: THALIDOMIDE
     Dosage: 100 MILLIGRAM
     Route: 048
     Dates: start: 201806
  2. THALOMID [Suspect]
     Active Substance: THALIDOMIDE
     Indication: HEREDITARY HAEMORRHAGIC TELANGIECTASIA
     Dosage: 100 MILLIGRAM
     Route: 048
     Dates: start: 20140402
  3. THALOMID [Suspect]
     Active Substance: THALIDOMIDE
     Dosage: 50 MILLIGRAM
     Route: 048
     Dates: start: 201809, end: 20190520
  4. AMICAR [Concomitant]
     Active Substance: AMINOCAPROIC ACID
     Indication: EPISTAXIS
     Dosage: SMALL AMOUNT ON Q-TIP
     Route: 065
     Dates: start: 20140328, end: 20190520
  5. THALOMID [Suspect]
     Active Substance: THALIDOMIDE
     Indication: OFF LABEL USE
     Dosage: 50 MILLIGRAM
     Route: 048
     Dates: start: 201505

REACTIONS (3)
  - Septic shock [Fatal]
  - Pneumonia [Fatal]
  - Cardiopulmonary failure [Fatal]

NARRATIVE: CASE EVENT DATE: 20190520
